APPROVED DRUG PRODUCT: FLEQSUVY
Active Ingredient: BACLOFEN
Strength: 25MG/5ML
Dosage Form/Route: SUSPENSION;ORAL
Application: N215602 | Product #001 | TE Code: AB
Applicant: AZURITY PHARMACEUTICALS INC
Approved: Feb 4, 2022 | RLD: Yes | RS: Yes | Type: RX

PATENTS:
Patent 11446246 | Expires: Sep 8, 2037
Patent 11324696 | Expires: Sep 29, 2037